FAERS Safety Report 5267123-9 (Version None)
Quarter: 2007Q1

REPORT INFORMATION
  Report Type: 
  Country: None (occurrence: None)
  Receive Date: 20070316
  Receipt Date: 20070308
  Transmission Date: 20070707
  Serious: Yes (Disabling)
  Sender: FDA-Public Use
  Company Number: 2007UW04559

PATIENT
  Age: 17 Year
  Sex: Female

DRUGS (1)
  1. SEROQUEL [Suspect]
     Indication: BIPOLAR DISORDER
     Route: 048
     Dates: end: 20070306

REACTIONS (6)
  - EYE MOVEMENT DISORDER [None]
  - EYE PAIN [None]
  - HEADACHE [None]
  - MIGRAINE [None]
  - VISION BLURRED [None]
  - VOMITING [None]
